FAERS Safety Report 21901382 (Version 1)
Quarter: 2023Q1

REPORT INFORMATION
  Report Type: Spontaneous
  Country: US (occurrence: US)
  Receive Date: 20230123
  Receipt Date: 20230123
  Transmission Date: 20230418
  Serious: Yes (Other)
  Sender: FDA-Public Use
  Company Number: US-SUNOVION-2023SUN000112

PATIENT
  Sex: Male

DRUGS (1)
  1. APTIOM [Suspect]
     Active Substance: ESLICARBAZEPINE ACETATE
     Indication: Epilepsy
     Dosage: 600 MG
     Route: 048

REACTIONS (2)
  - Seizure [Unknown]
  - Therapy interrupted [Unknown]
